FAERS Safety Report 8298827-1 (Version None)
Quarter: 2012Q2

REPORT INFORMATION
  Report Type: 
  Country: None (occurrence: None)
  Receive Date: 20120419
  Receipt Date: 20120411
  Transmission Date: 20120825
  Serious: Yes (Hospitalization)
  Sender: FDA-Public Use
  Company Number: US-US-EMD SERONO, INC.-7125682

PATIENT
  Sex: Female

DRUGS (2)
  1. MUSCLE RELAXERS [Concomitant]
     Indication: PAIN
  2. REBIF [Suspect]
     Indication: MULTIPLE SCLEROSIS
     Dates: start: 20090828

REACTIONS (13)
  - BLOOD PRESSURE INCREASED [None]
  - WHITE BLOOD CELL COUNT DECREASED [None]
  - MUSCULAR WEAKNESS [None]
  - CYST [None]
  - NASOPHARYNGITIS [None]
  - FATIGUE [None]
  - SEPSIS [None]
  - NODULE [None]
  - VISUAL IMPAIRMENT [None]
  - ARTHRALGIA [None]
  - MALAISE [None]
  - INJECTION SITE PAIN [None]
  - NAUSEA [None]
